FAERS Safety Report 19315709 (Version 1)
Quarter: 2021Q2

REPORT INFORMATION
  Report Type: Spontaneous
  Country: US (occurrence: US)
  Receive Date: 20210527
  Receipt Date: 20210527
  Transmission Date: 20210717
  Serious: No
  Sender: FDA-Public Use
  Company Number: US-ELI_LILLY_AND_COMPANY-US202105011853

PATIENT
  Sex: Female

DRUGS (2)
  1. ADCIRCA [Suspect]
     Active Substance: TADALAFIL
     Indication: COR PULMONALE
     Dosage: 40 MG, DAILY
     Route: 048
     Dates: start: 20171207
  2. ADCIRCA [Suspect]
     Active Substance: TADALAFIL
     Indication: RAYNAUD^S PHENOMENON

REACTIONS (2)
  - Amnesia [Unknown]
  - Off label use [Unknown]
